FAERS Safety Report 12083630 (Version 1)
Quarter: 2016Q1

REPORT INFORMATION
  Report Type: Spontaneous
  Country: GB (occurrence: GB)
  Receive Date: 20160217
  Receipt Date: 20160217
  Transmission Date: 20160526
  Serious: Yes (Other)
  Sender: FDA-Public Use
  Company Number: GB-TEVA-632952ACC

PATIENT
  Age: 72 Year
  Sex: Male
  Weight: 74 kg

DRUGS (17)
  1. PARACETAMOL [Concomitant]
     Active Substance: ACETAMINOPHEN
     Dosage: 8 DOSAGE FORMS DAILY;
     Dates: start: 20150627, end: 20160128
  2. SIMVASTATIN. [Concomitant]
     Active Substance: SIMVASTATIN
     Dosage: 1 DOSAGE FORMS DAILY; AT NIGHT; DAILY DOSE: 1 DOSAGE FORM
     Dates: start: 20150627, end: 20160128
  3. HYDROCORTISONE. [Concomitant]
     Active Substance: HYDROCORTISONE
     Dosage: APPLY TWICE DAILY THINLY
     Dates: start: 20160118
  4. SENNA [Concomitant]
     Active Substance: SENNA LEAF\SENNOSIDES\SENNOSIDES A AND B
     Dosage: EVENING
     Dates: start: 20151231
  5. METFORMIN [Suspect]
     Active Substance: METFORMIN HYDROCHLORIDE
     Dates: start: 20160128
  6. AMLODIPINE [Concomitant]
     Active Substance: AMLODIPINE BESYLATE
     Dosage: 1 DOSAGE FORMS DAILY;
     Dates: start: 20150627, end: 20160128
  7. BENDROFLUMETHIAZIDE [Concomitant]
     Active Substance: BENDROFLUMETHIAZIDE
     Dosage: 1 DOSAGE FORMS DAILY; EACH MORNING; DAILY DOSE: 1 DOSAGE FORM
     Dates: start: 20150627, end: 20160128
  8. CLOPIDOGREL [Concomitant]
     Active Substance: CLOPIDOGREL BISULFATE
     Dosage: 1 DOSAGE FORMS DAILY;
     Dates: start: 20150627, end: 20160128
  9. FUROSEMIDE. [Concomitant]
     Active Substance: FUROSEMIDE
     Dosage: 1 DOSAGE FORMS DAILY; EACH MORNING; DAILY DOSE: 1 DOSAGE FORM
     Dates: start: 20151022, end: 20160128
  10. ISOSORBIDE MONONITRATE. [Concomitant]
     Active Substance: ISOSORBIDE MONONITRATE
     Dosage: 1 DOSAGE FORMS DAILY; EACH MORNING; DAILY DOSE: 1 DOSAGE FORM
     Dates: start: 20150627, end: 20160128
  11. OILATUM [Concomitant]
     Dosage: 3 DOSAGE FORMS DAILY; TDS; DAILY DOSE: 3 DOSAGE FORMS
     Dates: start: 20151022, end: 20160128
  12. SITAGLIPTIN [Concomitant]
     Active Substance: SITAGLIPTIN
     Dosage: 1 DOSAGE FORMS DAILY;
     Dates: start: 20150627, end: 20160128
  13. GLICLAZIDE [Concomitant]
     Active Substance: GLICLAZIDE
     Dosage: 1.5 DOSAGE FORMS DAILY;
     Dates: start: 20150627, end: 20160128
  14. LACTULOSE. [Concomitant]
     Active Substance: LACTULOSE
     Dates: start: 20160123
  15. LANSOPRAZOLE. [Concomitant]
     Active Substance: LANSOPRAZOLE
     Dosage: 1 DOSAGE FORMS DAILY;
     Dates: start: 20150627, end: 20160128
  16. RAMIPRIL. [Concomitant]
     Active Substance: RAMIPRIL
     Dosage: 1 DOSAGE FORMS DAILY;
     Dates: start: 20150627, end: 20160128
  17. METRONIDAZOLE. [Concomitant]
     Active Substance: METRONIDAZOLE
     Dosage: 2 DOSAGE FORMS DAILY; APPLY; DAILY DOSE: 2 DOSAGE FORMS
     Dates: start: 20151214, end: 20160128

REACTIONS (1)
  - Rash erythematous [Not Recovered/Not Resolved]

NARRATIVE: CASE EVENT DATE: 20160128
